FAERS Safety Report 5288133-1 (Version None)
Quarter: 2007Q2

REPORT INFORMATION
  Report Type: 
  Country: None (occurrence: None)
  Receive Date: 20070405
  Receipt Date: 20070327
  Transmission Date: 20071010
  Serious: Yes (Other)
  Sender: FDA-Public Use
  Company Number: PHBS2007TR02657

PATIENT
  Age: 6 Year
  Sex: Female

DRUGS (2)
  1. METHYLPHENIDATE HCL [Suspect]
     Indication: ATTENTION DEFICIT/HYPERACTIVITY DISORDER
     Dosage: 15 MG/DAY
  2. RISPERIDONE [Concomitant]
     Indication: OPPOSITIONAL DEFIANT DISORDER
     Dosage: 1 MG/DAY

REACTIONS (5)
  - ABNORMAL BEHAVIOUR [None]
  - AGITATION [None]
  - DISTRACTIBILITY [None]
  - IRRITABILITY [None]
  - TACHYPHRENIA [None]
